FAERS Safety Report 6220493-7 (Version None)
Quarter: 2009Q2

REPORT INFORMATION
  Report Type: 
  Country: None (occurrence: None)
  Receive Date: 20090610
  Receipt Date: 20090529
  Transmission Date: 20091009
  Serious: Yes (Other)
  Sender: FDA-Public Use
  Company Number: JP-PFIZER INC-2009202891

PATIENT
  Age: 77 Year

DRUGS (1)
  1. ZYVOX [Suspect]
     Indication: POST PROCEDURAL INFECTION
     Dosage: 600 MG, 2X/DAY
     Route: 048
     Dates: start: 20090413, end: 20090425

REACTIONS (3)
  - ANOREXIA [None]
  - DRUG ERUPTION [None]
  - PANCYTOPENIA [None]
